FAERS Safety Report 23027569 (Version 1)
Quarter: 2023Q4

REPORT INFORMATION
  Report Type: Spontaneous
  Country: US (occurrence: US)
  Receive Date: 20231004
  Receipt Date: 20231004
  Transmission Date: 20240110
  Serious: Yes (Other)
  Sender: FDA-Public Use
  Company Number: US-CHEPLA-2023012266

PATIENT
  Sex: Male
  Weight: 161.5 kg

DRUGS (8)
  1. CLONAZEPAM [Suspect]
     Active Substance: CLONAZEPAM
     Indication: Bipolar II disorder
     Dosage: ONGOING
  2. CAPLYTA [Suspect]
     Active Substance: LUMATEPERONE
     Indication: Bipolar II disorder
     Dosage: DAILY DOSE: 10.5 MILLIGRAM
     Route: 048
     Dates: start: 2023, end: 20230827
  3. CAPLYTA [Suspect]
     Active Substance: LUMATEPERONE
     Indication: Bipolar II disorder
     Dosage: ONGOING?DAILY DOSE: 10.5 MILLIGRAM
     Route: 048
     Dates: start: 2023
  4. CAPLYTA [Suspect]
     Active Substance: LUMATEPERONE
     Indication: Bipolar II disorder
     Dosage: DAILY DOSE: 42 MILLIGRAM
     Route: 048
     Dates: start: 202306, end: 2023
  5. CAPLYTA [Suspect]
     Active Substance: LUMATEPERONE
     Indication: Bipolar II disorder
     Dosage: DAILY DOSE: 21 MILLIGRAM
     Route: 048
     Dates: start: 20230828
  6. WEGOVY [Suspect]
     Active Substance: SEMAGLUTIDE
     Dosage: ONGOING
  7. LINZESS [Concomitant]
     Active Substance: LINACLOTIDE
  8. METFORMIN [Concomitant]
     Active Substance: METFORMIN HYDROCHLORIDE

REACTIONS (2)
  - Cushing^s syndrome [Not Recovered/Not Resolved]
  - Sedation complication [Recovered/Resolved]

NARRATIVE: CASE EVENT DATE: 20230101
